FAERS Safety Report 6533039-0 (Version None)
Quarter: 2010Q1

REPORT INFORMATION
  Report Type: 
  Country: None (occurrence: None)
  Receive Date: 20100111
  Receipt Date: 20100105
  Transmission Date: 20100710
  Serious: Yes (Other)
  Sender: FDA-Public Use
  Company Number: FR-PFIZER INC-2009288438

PATIENT
  Age: 45 Year
  Sex: Male
  Weight: 57 kg

DRUGS (9)
  1. CHAMPIX [Suspect]
     Indication: SMOKING CESSATION THERAPY
     Dosage: 0.5 MG, 1X/DAY
     Route: 048
     Dates: start: 20080630
  2. CHAMPIX [Suspect]
     Dosage: 0.5 MG, 2X/DAY
  3. CHAMPIX [Suspect]
     Dosage: 1 MG, 2X/DAY
  4. VENTOLIN [Concomitant]
  5. SYMBICORT [Concomitant]
  6. MONTELUKAST [Concomitant]
  7. XYZAL [Concomitant]
  8. SERETIDE [Concomitant]
     Indication: ASTHMA
     Dosage: UNK
  9. FLUTICASONE PROPIONATE [Concomitant]
     Indication: ASTHMA
     Dosage: UNK

REACTIONS (3)
  - AMNESIA [None]
  - COGNITIVE DISORDER [None]
  - DISORIENTATION [None]
